FAERS Safety Report 9720314 (Version 1)
Quarter: 2013Q4

REPORT INFORMATION
  Report Type: Spontaneous
  Country: US (occurrence: US)
  Receive Date: 20131129
  Receipt Date: 20131129
  Transmission Date: 20140711
  Serious: No
  Sender: FDA-Public Use
  Company Number: US-BIOGENIDEC-2013BI113667

PATIENT
  Age: 56 Year
  Sex: Female

DRUGS (15)
  1. AVONEX [Suspect]
     Indication: MULTIPLE SCLEROSIS
     Route: 030
     Dates: start: 20090219
  2. AMANTADINE HCL [Concomitant]
  3. BIOTIN [Concomitant]
  4. CENTRUM [Concomitant]
  5. COD LIVER OIL [Concomitant]
  6. CRANBERRY [Concomitant]
  7. FLAXSEED OIL [Concomitant]
  8. FLECTOR [Concomitant]
  9. GABAPENTIN [Concomitant]
  10. GLUCOSAMINE-CHONDROITIN [Concomitant]
  11. IBUPROFEN [Concomitant]
  12. KLOR-CON [Concomitant]
  13. LYSINE HCL [Concomitant]
  14. PROCTOFOAM HC [Concomitant]
  15. SELENIUM [Concomitant]

REACTIONS (2)
  - Optic neuritis [Unknown]
  - Depression [Unknown]
